FAERS Safety Report 18593998 (Version 1)
Quarter: 2020Q4

REPORT INFORMATION
  Report Type: Spontaneous
  Country: HU (occurrence: HU)
  Receive Date: 20201209
  Receipt Date: 20201209
  Transmission Date: 20210114
  Serious: Yes (Hospitalization)
  Sender: FDA-Public Use
  Company Number: HU-JNJFOC-20201211857

PATIENT
  Age: 49 Year
  Sex: Male

DRUGS (1)
  1. XARELTO [Suspect]
     Active Substance: RIVAROXABAN
     Indication: DEEP VEIN THROMBOSIS
     Dosage: 15 MG, BID
     Route: 048

REACTIONS (8)
  - Chest pain [Unknown]
  - Dizziness [Unknown]
  - Feeling abnormal [Unknown]
  - Chest discomfort [Unknown]
  - Pulmonary embolism [Unknown]
  - Cough [Unknown]
  - Hemianaesthesia [Unknown]
  - Asthenia [Unknown]
